FAERS Safety Report 4871614-X (Version None)
Quarter: 2006Q1

REPORT INFORMATION
  Report Type: 
  Country: None (occurrence: None)
  Receive Date: 20060104
  Receipt Date: 20051223
  Transmission Date: 20060701
  Serious: Yes (Hospitalization)
  Sender: FDA-Public Use
  Company Number: CO-JNJFOC-20051206056

PATIENT
  Age: 76 Year
  Sex: Female

DRUGS (1)
  1. REMINYL [Suspect]
     Dosage: 24-28MG DAILY

REACTIONS (5)
  - ASTHENIA [None]
  - CARDIOVASCULAR DISORDER [None]
  - HYPERHIDROSIS [None]
  - SOMNOLENCE [None]
  - VOMITING [None]
